FAERS Safety Report 20841641 (Version 2)
Quarter: 2022Q2

REPORT INFORMATION
  Report Type: Spontaneous
  Country: NL (occurrence: NL)
  Receive Date: 20220518
  Receipt Date: 20220606
  Transmission Date: 20220721
  Serious: Yes (Other)
  Sender: FDA-Public Use
  Company Number: NL-LRB-00806599

PATIENT
  Age: 56 Year
  Sex: Male

DRUGS (3)
  1. OLANZAPINE [Suspect]
     Active Substance: OLANZAPINE
     Indication: Bipolar disorder
     Dosage: 10 MILLIGRAM, ONCE A DAY (1 X PER DAY 1 TABLET)
     Route: 065
     Dates: start: 20220109, end: 20220414
  2. LORAZEPAM [Concomitant]
     Active Substance: LORAZEPAM
     Indication: Product used for unknown indication
     Dosage: 4.5 MILLIGRAM, ONCE A DAY (TOTAL)
     Route: 065
  3. FLUOXETINE [Concomitant]
     Active Substance: FLUOXETINE HYDROCHLORIDE
     Indication: Product used for unknown indication
     Dosage: 40 MILLIGRAM, ONCE A DAY (2X20MG CAPSULE PER DAG)
     Route: 065

REACTIONS (2)
  - Cerebral infarction [Recovering/Resolving]
  - Bundle branch block right [Recovering/Resolving]

NARRATIVE: CASE EVENT DATE: 20220413
